FAERS Safety Report 6911303-0 (Version None)
Quarter: 2010Q3

REPORT INFORMATION
  Report Type: 
  Country: None (occurrence: None)
  Receive Date: 20100806
  Receipt Date: 20100723
  Transmission Date: 20110219
  Serious: Yes (Hospitalization)
  Sender: FDA-Public Use
  Company Number: PHHY2010CH48317

PATIENT
  Sex: Male

DRUGS (1)
  1. AFINITOR [Suspect]
     Indication: PANCREATIC CARCINOMA
     Dosage: 10 MG,DAILY
     Route: 048
     Dates: start: 20100408, end: 20100421

REACTIONS (4)
  - C-REACTIVE PROTEIN INCREASED [None]
  - CHILLS [None]
  - DIARRHOEA [None]
  - PYREXIA [None]
